FAERS Safety Report 13677372 (Version 1)
Quarter: 2017Q2

REPORT INFORMATION
  Report Type: Spontaneous
  Country: US (occurrence: US)
  Receive Date: 20170621
  Receipt Date: 20170621
  Transmission Date: 20170830
  Serious: Yes (Hospitalization, Disabling)
  Sender: FDA-Public Use
  Company Number: None

PATIENT
  Age: 50 Year
  Sex: Female
  Weight: 120.1 kg

DRUGS (1)
  1. ALPRAZOLAM. [Suspect]
     Active Substance: ALPRAZOLAM
     Indication: INSOMNIA
     Dosage: ?          QUANTITY:1 TABLET(S);?
     Route: 048

REACTIONS (18)
  - Hallucination [None]
  - Bedridden [None]
  - Insomnia [None]
  - Anger [None]
  - Impaired quality of life [None]
  - Impaired driving ability [None]
  - Intrusive thoughts [None]
  - Back pain [None]
  - Mental disorder [None]
  - Withdrawal syndrome [None]
  - Seizure [None]
  - Loss of consciousness [None]
  - Mental impairment [None]
  - Depression [None]
  - Fatigue [None]
  - Balance disorder [None]
  - Pain in extremity [None]
  - Depersonalisation/derealisation disorder [None]

NARRATIVE: CASE EVENT DATE: 20110913
